FAERS Safety Report 9027924 (Version 1)
Quarter: 2013Q1

REPORT INFORMATION
  Report Type: Spontaneous
  Country: US (occurrence: None)
  Receive Date: 20130114
  Receipt Date: 20130114
  Transmission Date: 20140127
  Serious: No
  Sender: FDA-Public Use
  Company Number: None

PATIENT
  Sex: 0

DRUGS (1)
  1. TRIFLUOPERAZINE [Suspect]

REACTIONS (5)
  - Decreased interest [None]
  - Abnormal dreams [None]
  - Restlessness [None]
  - Anxiety [None]
  - Product substitution issue [None]
